FAERS Safety Report 19181575 (Version 1)
Quarter: 2021Q2

REPORT INFORMATION
  Report Type: Spontaneous
  Country: CA (occurrence: CA)
  Receive Date: 20210426
  Receipt Date: 20210426
  Transmission Date: 20210717
  Serious: Yes (Other)
  Sender: FDA-Public Use
  Company Number: CA-PFIZER INC-2021044854

PATIENT
  Age: 24 Year
  Sex: Female
  Weight: 50 kg

DRUGS (4)
  1. AZATHIOPRINE. [Concomitant]
     Active Substance: AZATHIOPRINE
     Indication: PEMPHIGUS
     Dosage: 250 MG, 1X/DAY
  2. ACETAMINOPHEN. [Concomitant]
     Active Substance: ACETAMINOPHEN
     Indication: PREMEDICATION
     Dosage: 650 MG
     Dates: start: 20210311, end: 20210311
  3. RUXIENCE [Suspect]
     Active Substance: RITUXIMAB-PVVR
     Indication: PEMPHIGUS
     Dosage: 1000MG, 0, 2 WEEKS, AND REPEAT EVERY 6 MONTHS
     Route: 042
     Dates: start: 20210311
  4. PREDNISONE. [Concomitant]
     Active Substance: PREDNISONE
     Indication: PEMPHIGUS
     Dosage: 10 MG

REACTIONS (5)
  - Pruritus [Recovered/Resolved]
  - Flushing [Recovering/Resolving]
  - Off label use [Unknown]
  - Dizziness [Recovered/Resolved]
  - Erythema [Unknown]

NARRATIVE: CASE EVENT DATE: 20210311
